FAERS Safety Report 15708843 (Version 1)
Quarter: 2018Q4

REPORT INFORMATION
  Report Type: Spontaneous
  Country: PT (occurrence: PT)
  Receive Date: 20181211
  Receipt Date: 20181211
  Transmission Date: 20190205
  Serious: Yes (Other)
  Sender: FDA-Public Use
  Company Number: PT-009507513-1812PRT003211

PATIENT
  Age: 47 Year
  Sex: Female

DRUGS (1)
  1. NUVARING [Suspect]
     Active Substance: ETHINYL ESTRADIOL\ETONOGESTREL
     Indication: CONTRACEPTION
     Dosage: 1 RING
     Route: 067
     Dates: start: 20181002

REACTIONS (6)
  - Pain [Recovered/Resolved]
  - Burning sensation [Recovered/Resolved]
  - Discomfort [Recovered/Resolved]
  - Device breakage [Recovered/Resolved]
  - Vaginal infection [Recovered/Resolved]
  - Device expulsion [Recovered/Resolved]

NARRATIVE: CASE EVENT DATE: 2018
